FAERS Safety Report 12242612 (Version 1)
Quarter: 2016Q2

REPORT INFORMATION
  Report Type: Other
  Country: FR (occurrence: FR)
  Receive Date: 20160406
  Receipt Date: 20160406
  Transmission Date: 20160815
  Serious: No
  Sender: FDA-Public Use
  Company Number: FR-WARNER CHILCOTT, LLC-1050282

PATIENT
  Age: 76 Year
  Sex: Female

DRUGS (5)
  1. ACTONEL [Suspect]
     Active Substance: RISEDRONATE SODIUM
     Route: 048
     Dates: start: 20160302, end: 20160302
  2. ZELITREX [Concomitant]
     Active Substance: VALACYCLOVIR HYDROCHLORIDE
  3. PROCORALAN [Concomitant]
     Active Substance: IVABRADINE
  4. CALCIUM VITAMIN D [Concomitant]
     Active Substance: CALCIUM\VITAMIN D
  5. CORTANCYL [Concomitant]
     Active Substance: PREDNISONE

REACTIONS (6)
  - Asthenia [Recovered/Resolved]
  - Visual impairment [Recovered/Resolved]
  - Nausea [Recovered/Resolved]
  - Incorrect drug administration rate [Recovered/Resolved]
  - Abdominal pain [Recovered/Resolved]
  - Medication error [Recovered/Resolved]
